FAERS Safety Report 16359261 (Version 2)
Quarter: 2019Q2

REPORT INFORMATION
  Report Type: Spontaneous
  Country: US (occurrence: US)
  Receive Date: 20190528
  Receipt Date: 20190621
  Transmission Date: 20190711
  Serious: No
  Sender: FDA-Public Use
  Company Number: US-GLAXOSMITHKLINE-US2019093239

PATIENT
  Age: 42 Year
  Sex: Female

DRUGS (1)
  1. ADVAIR DISKUS [Suspect]
     Active Substance: FLUTICASONE PROPIONATE\SALMETEROL XINAFOATE
     Indication: PRODUCT USED FOR UNKNOWN INDICATION
     Dosage: 1 PUFF(S), BID
     Route: 055
     Dates: start: 2004

REACTIONS (6)
  - Drug ineffective [Not Recovered/Not Resolved]
  - Overdose [Recovered/Resolved]
  - Product dose omission [Unknown]
  - Dyspnoea [Not Recovered/Not Resolved]
  - Wrong technique in device usage process [Not Recovered/Not Resolved]
  - Product complaint [Unknown]

NARRATIVE: CASE EVENT DATE: 20190513
